FAERS Safety Report 9243054 (Version 1)
Quarter: 2013Q2

REPORT INFORMATION
  Report Type: Spontaneous
  Country: RO (occurrence: RO)
  Receive Date: 20130419
  Receipt Date: 20130419
  Transmission Date: 20140414
  Serious: Yes (Hospitalization, Other)
  Sender: FDA-Public Use
  Company Number: RO-ELI_LILLY_AND_COMPANY-RO201304005378

PATIENT
  Age: 45 Year
  Sex: Male

DRUGS (5)
  1. ZYPREXA [Suspect]
     Indication: DEPRESSION
     Dosage: 10 MG, QD
  2. SEROQUEL [Concomitant]
     Indication: DEPRESSION
     Dosage: 300 MG, QD
  3. SERTRALINE [Concomitant]
     Indication: DEPRESSION
     Dosage: 100 MG, QD
  4. ORFIRIL [Concomitant]
     Dosage: 500 MG, QD
  5. DIAZEPAM [Concomitant]
     Dosage: 40 MG, QD

REACTIONS (5)
  - Intestinal obstruction [Recovered/Resolved]
  - Bladder dilatation [Recovered/Resolved]
  - Pyrexia [Recovered/Resolved]
  - Negativism [Recovered/Resolved]
  - Drug ineffective [Recovered/Resolved]
